FAERS Safety Report 20442682 (Version 3)
Quarter: 2022Q4

REPORT INFORMATION
  Report Type: Other
  Country: GB (occurrence: GB)
  Receive Date: 20220208
  Receipt Date: 20221204
  Transmission Date: 20230112
  Serious: Yes (Other)
  Sender: FDA-Public Use
  Company Number: None

PATIENT
  Age: 54 Year
  Sex: Male

DRUGS (474)
  1. FUROSEMIDE [Suspect]
     Active Substance: FUROSEMIDE
     Indication: Ill-defined disorder
     Dosage: 20 MILLIGRAM, BID
     Route: 042
  2. FUROSEMIDE [Suspect]
     Active Substance: FUROSEMIDE
     Indication: Pneumonia
     Dosage: 40 MILLIGRAM, QD
     Route: 042
  3. FUROSEMIDE [Suspect]
     Active Substance: FUROSEMIDE
     Dosage: 20 MILLIGRAM, QD
     Route: 042
     Dates: start: 2006
  4. FUROSEMIDE [Suspect]
     Active Substance: FUROSEMIDE
     Dosage: UNK
     Route: 042
     Dates: start: 2006
  5. FUROSEMIDE [Suspect]
     Active Substance: FUROSEMIDE
     Dosage: 20 MILLIGRAM, QD
     Route: 048
     Dates: start: 2006
  6. FUROSEMIDE [Suspect]
     Active Substance: FUROSEMIDE
     Dosage: UNK
     Route: 065
  7. FUROSEMIDE [Suspect]
     Active Substance: FUROSEMIDE
     Dosage: 40 MILLIGRAM, QD
     Route: 042
     Dates: start: 2006
  8. FUROSEMIDE [Suspect]
     Active Substance: FUROSEMIDE
     Dosage: 2 MILLIGRAM, QD
     Route: 042
     Dates: start: 2006
  9. FUROSEMIDE [Suspect]
     Active Substance: FUROSEMIDE
     Dosage: 20 MILLIGRAM, BID
     Route: 042
     Dates: start: 2006
  10. FUROSEMIDE [Suspect]
     Active Substance: FUROSEMIDE
     Dosage: 20 MILLIGRAM, BID
     Route: 042
     Dates: start: 2006
  11. FUROSEMIDE [Suspect]
     Active Substance: FUROSEMIDE
     Dosage: 20 MILLIGRAM, QD
     Route: 048
  12. FUROSEMIDE [Suspect]
     Active Substance: FUROSEMIDE
     Dosage: 20 MILLIGRAM, QD
     Route: 042
     Dates: start: 2006
  13. FUROSEMIDE [Suspect]
     Active Substance: FUROSEMIDE
     Dosage: UNK
     Route: 042
  14. FUROSEMIDE [Suspect]
     Active Substance: FUROSEMIDE
     Dosage: 40 MILLIGRAM, PER DAY (40 MILLIGRAM, ONCE A DAY)
     Route: 042
  15. POTASSIUM CITRATE [Suspect]
     Active Substance: POTASSIUM CITRATE
     Indication: Ill-defined disorder
     Dosage: 2 DOSAGE FORM, TID
     Route: 065
     Dates: start: 2006
  16. POTASSIUM CITRATE [Suspect]
     Active Substance: POTASSIUM CITRATE
     Dosage: 6 DOSAGE FORM, QD (FREQUENCY OF PRODUCT : 3D)
     Route: 065
  17. POTASSIUM CITRATE [Suspect]
     Active Substance: POTASSIUM CITRATE
     Dosage: UNK
     Route: 065
     Dates: start: 2006
  18. AMOXICILLIN [Suspect]
     Active Substance: AMOXICILLIN
     Indication: Ill-defined disorder
     Dosage: 1 GRAM, TID, (CUMULATIVE DOSE: 764.8 MG)
     Route: 042
     Dates: start: 20060913
  19. AMOXICILLIN [Suspect]
     Active Substance: AMOXICILLIN
     Indication: Pneumonia
     Dosage: 250 MILLIGRAM, TID (CUMULATIVE DOSE: 191218.7 MG)
     Route: 048
     Dates: start: 20060913
  20. AMOXICILLIN [Suspect]
     Active Substance: AMOXICILLIN
     Dosage: 1 GRAM, TID
     Route: 042
  21. AMOXICILLIN [Suspect]
     Active Substance: AMOXICILLIN
     Dosage: 250 MILLIGRAM, TID
     Route: 048
     Dates: start: 20060913
  22. AMOXICILLIN [Suspect]
     Active Substance: AMOXICILLIN
     Dosage: 1 GRAM
     Route: 042
  23. AMOXICILLIN [Suspect]
     Active Substance: AMOXICILLIN
     Dosage: 1 GRAM, QD
     Route: 042
  24. AMOXICILLIN [Suspect]
     Active Substance: AMOXICILLIN
     Dosage: UNK,1 G, TIME INTERVAL
     Route: 042
     Dates: start: 20060913
  25. AMOXICILLIN [Suspect]
     Active Substance: AMOXICILLIN
     Dosage: 3 GRAM, TID
     Route: 042
     Dates: start: 20060913
  26. AMOXICILLIN [Suspect]
     Active Substance: AMOXICILLIN
     Dosage: 1125 MILLIGRAM, QD
     Route: 065
     Dates: start: 20060913
  27. AMOXICILLIN [Suspect]
     Active Substance: AMOXICILLIN
     Dosage: 375 MILLIGRAM, TID
     Route: 065
     Dates: start: 20060913
  28. AMOXICILLIN [Suspect]
     Active Substance: AMOXICILLIN
     Dosage: 875 MILLIGRAM, QD
     Route: 065
     Dates: start: 20060913
  29. AMOXICILLIN [Suspect]
     Active Substance: AMOXICILLIN
     Dosage: 2625 MILLIGRAM, QD
     Route: 065
     Dates: start: 20060913
  30. AMOXICILLIN [Suspect]
     Active Substance: AMOXICILLIN
     Dosage: 250 MILLIGRAM, UNK
     Route: 048
  31. AMOXICILLIN [Suspect]
     Active Substance: AMOXICILLIN
     Dosage: 750 MILLIGRAM, ONCE A DAY
     Route: 048
     Dates: start: 20060913
  32. AMOXICILLIN [Suspect]
     Active Substance: AMOXICILLIN
     Dosage: 750 MILLIGRAM, PER DAY, (250 MG, TID )
     Route: 048
     Dates: start: 20060913
  33. AMOXICILLIN [Suspect]
     Active Substance: AMOXICILLIN
     Dosage: 1 GRAM, TID CUMULATIVE FREQUENCY (764.875 GRAM)
     Route: 042
     Dates: start: 20060913
  34. AMOXICILLIN [Suspect]
     Active Substance: AMOXICILLIN
     Dosage: 3 GRAM, QD,3 G, QD (1 G,TID (DAILY DOSE: 3 GRAM(S), 1 G, TID), (0.33 DAY)
     Route: 042
     Dates: start: 20060913
  35. AMOXICILLIN [Suspect]
     Active Substance: AMOXICILLIN
     Dosage: 250 GRAM, TID
     Route: 042
     Dates: start: 20060913
  36. AMOXICILLIN [Suspect]
     Active Substance: AMOXICILLIN
     Dosage: UNK
     Route: 042
  37. AMOXICILLIN [Suspect]
     Active Substance: AMOXICILLIN
     Dosage: 250 MILLIGRAM, QD
     Route: 042
  38. AMOXICILLIN [Suspect]
     Active Substance: AMOXICILLIN
     Dosage: 3 UNK,3 G, QD, 1 G 3/1 DAYS (CUMULATIVE DOSE: 764.875 MG)
     Route: 042
  39. AMOXICILLIN [Suspect]
     Active Substance: AMOXICILLIN
     Dosage: 250 MILLIGRAM, TID
     Route: 048
  40. AMOXICILLIN [Suspect]
     Active Substance: AMOXICILLIN
     Dosage: UNK
     Route: 065
  41. AMOXICILLIN [Suspect]
     Active Substance: AMOXICILLIN
     Dosage: 1 GRAM, BID
     Route: 042
  42. AMOXICILLIN [Suspect]
     Active Substance: AMOXICILLIN
     Dosage: 1 GRAM, TID
     Route: 042
  43. AMOXICILLIN [Suspect]
     Active Substance: AMOXICILLIN
     Dosage: 750 MILLIGRAM, ONCE A DAY
     Route: 042
     Dates: start: 20060913
  44. AMOXICILLIN [Suspect]
     Active Substance: AMOXICILLIN
     Dosage: 250 MILLIGRAM
     Route: 048
  45. AMOXICILLIN [Suspect]
     Active Substance: AMOXICILLIN
     Dosage: 250 MILLIGRAM, QD
     Route: 048
  46. AMOXICILLIN [Suspect]
     Active Substance: AMOXICILLIN
     Dosage: 750 MILLIGRAM, TID
     Route: 048
  47. AMOXICILLIN [Suspect]
     Active Substance: AMOXICILLIN
     Dosage: 250 MILLIGRAM, TID
     Route: 048
     Dates: start: 20060913
  48. AMOXICILLIN [Suspect]
     Active Substance: AMOXICILLIN
     Dosage: 1 GRAM, QD
     Route: 042
  49. AMOXICILLIN [Suspect]
     Active Substance: AMOXICILLIN
     Dosage: 3 GRAM, TID
     Route: 042
     Dates: start: 20060913
  50. AMOXICILLIN [Suspect]
     Active Substance: AMOXICILLIN
     Dosage: 1 GRAM, EVERY 12 HRS
     Route: 042
  51. AMOXICILLIN [Suspect]
     Active Substance: AMOXICILLIN
     Dosage: 1 GRAM, TID
     Route: 042
  52. AMOXICILLIN [Suspect]
     Active Substance: AMOXICILLIN
     Dosage: 1 GRAM, TID
     Route: 042
     Dates: start: 20060913
  53. AMOXICILLIN [Suspect]
     Active Substance: AMOXICILLIN
     Dosage: 750 MILLIGRAM, PER DAY, (250 MILLIGRAM, 3 TIMES A DAY)
     Route: 048
     Dates: start: 20060913
  54. AMOXICILLIN [Suspect]
     Active Substance: AMOXICILLIN
     Dosage: 750 MILLIGRAM, PER DAY, (250 MG, TID)
     Route: 048
     Dates: start: 20060913
  55. AMOXICILLIN [Suspect]
     Active Substance: AMOXICILLIN
     Dosage: 750 MILLIGRAM, PER DAY, (250 MG, TID)
     Route: 048
     Dates: start: 20060913
  56. AMOXICILLIN [Suspect]
     Active Substance: AMOXICILLIN
     Dosage: 3 GRAM, PER DAY, (1 GRAM, 3 TIMES A DAY)
     Route: 042
     Dates: start: 20060913
  57. AMOXICILLIN [Suspect]
     Active Substance: AMOXICILLIN
     Dosage: 3 GRAM, PER DAY, (1 GRAM, 3 TIMES A DAY)
     Route: 042
     Dates: start: 20060913
  58. AMOXICILLIN [Suspect]
     Active Substance: AMOXICILLIN
     Dosage: 750 GRAM, PER DAY, (250 GRAM, 3 TIMES A DAY ), CUMULATIVE DOSE: 191218.75 G
     Route: 042
     Dates: start: 20060913
  59. AMOXICILLIN [Suspect]
     Active Substance: AMOXICILLIN
     Dosage: 250 MILLIGRAM, QD
     Route: 048
     Dates: start: 20060913
  60. AMOXICILLIN [Suspect]
     Active Substance: AMOXICILLIN
     Dosage: 3 GRAM, PER DAY (1 GRAM, TID )
     Route: 042
  61. AMOXICILLIN [Suspect]
     Active Substance: AMOXICILLIN
     Dosage: 9 GRAM, PER DAY, (3 G, TID)
     Route: 042
  62. AMOXICILLIN [Suspect]
     Active Substance: AMOXICILLIN
     Dosage: 250 MILLIGRAM, QD
     Route: 042
  63. AMOXICILLIN [Suspect]
     Active Substance: AMOXICILLIN
     Dosage: 1 GRAM, EVERY 8 HOURS
     Route: 042
  64. LORAZEPAM [Suspect]
     Active Substance: LORAZEPAM
     Indication: Pneumonia
     Dosage: UNK, 1-2MG ONCE ONLY
     Route: 065
     Dates: start: 2006
  65. LORAZEPAM [Suspect]
     Active Substance: LORAZEPAM
     Indication: Ill-defined disorder
     Dosage: UNK
     Route: 065
  66. LORAZEPAM [Suspect]
     Active Substance: LORAZEPAM
     Dosage: 1.2 MILLIGRAM
     Route: 065
     Dates: start: 2006
  67. LORAZEPAM [Suspect]
     Active Substance: LORAZEPAM
     Dosage: 2 MILLIGRAM, QD
     Route: 065
  68. LORAZEPAM [Suspect]
     Active Substance: LORAZEPAM
     Dosage: 2 GRAM, QD
     Route: 065
  69. LORAZEPAM [Suspect]
     Active Substance: LORAZEPAM
     Dosage: UNK,1-2 MG ONCE DAILY
     Route: 065
  70. LORAZEPAM [Suspect]
     Active Substance: LORAZEPAM
     Dosage: 2 MILLIGRAM, QD
     Route: 065
  71. LORAZEPAM [Suspect]
     Active Substance: LORAZEPAM
     Dosage: UNK,1-2 MG ONCE DAILY
     Route: 065
  72. LORAZEPAM [Suspect]
     Active Substance: LORAZEPAM
     Dosage: UNK,1-2 MG ONCE DAILY
     Route: 065
     Dates: start: 2006
  73. ERYTHROMYCIN [Suspect]
     Active Substance: ERYTHROMYCIN
     Indication: Ill-defined disorder
     Dosage: UNK
     Route: 065
  74. ERYTHROMYCIN [Suspect]
     Active Substance: ERYTHROMYCIN
     Dosage: 250 MILLIGRAM, QD
     Route: 065
  75. ERYTHROMYCIN [Suspect]
     Active Substance: ERYTHROMYCIN
     Dosage: 250 MILLIGRAM, QD
  76. ERYTHROMYCIN [Suspect]
     Active Substance: ERYTHROMYCIN
     Dosage: 25 MILLIGRAM, UNK
  77. ERYTHROMYCIN [Suspect]
     Active Substance: ERYTHROMYCIN
     Dosage: 250 MILLIGRAM/DAY
     Route: 065
  78. ERYTHROMYCIN [Suspect]
     Active Substance: ERYTHROMYCIN
     Dosage: 250 MILLIGRAM
     Route: 065
  79. ERYTHROMYCIN [Suspect]
     Active Substance: ERYTHROMYCIN
     Dosage: 250 MILLIGRAM, UNK
  80. ERYTHROMYCIN [Suspect]
     Active Substance: ERYTHROMYCIN
     Dosage: 250 MILLIGRAM, UNK
     Route: 065
  81. ERYTHROMYCIN [Suspect]
     Active Substance: ERYTHROMYCIN
     Dosage: 250 MILLIGRAM, QD
     Route: 065
  82. ERYTHROMYCIN [Suspect]
     Active Substance: ERYTHROMYCIN
     Dosage: UNK
     Route: 065
  83. ERYTHROMYCIN [Suspect]
     Active Substance: ERYTHROMYCIN
     Dosage: 250 MILLIGRAM
     Route: 050
  84. ERYTHROMYCIN [Suspect]
     Active Substance: ERYTHROMYCIN
     Dosage: 250 MILLIGRAM PER DAY
     Route: 050
  85. ERYTHROMYCIN [Suspect]
     Active Substance: ERYTHROMYCIN
     Dosage: 25 MILLIGRAM
     Route: 050
  86. ERYTHROMYCIN [Suspect]
     Active Substance: ERYTHROMYCIN
     Dosage: 250 MILLIGRAM
     Route: 050
  87. ERYTHROMYCIN [Suspect]
     Active Substance: ERYTHROMYCIN
     Dosage: 25 MILLIGRAM, UNK
     Route: 065
  88. ALFENTANIL [Suspect]
     Active Substance: ALFENTANIL
     Indication: Pneumonia
     Dosage: 120 DOSAGE FORM, INFUSION
     Route: 042
     Dates: start: 2006
  89. ALFENTANIL [Suspect]
     Active Substance: ALFENTANIL
     Indication: Ill-defined disorder
     Dosage: 120 DOSAGE FORM, INFUSION
     Route: 042
     Dates: start: 2006
  90. ALFENTANIL [Suspect]
     Active Substance: ALFENTANIL
     Dosage: UNK
     Route: 061
  91. ALFENTANIL [Suspect]
     Active Substance: ALFENTANIL
     Dosage: UNK, INFUSION
     Route: 042
  92. ALFENTANIL [Suspect]
     Active Substance: ALFENTANIL
     Dosage: UNK
     Route: 042
  93. ALFENTANIL [Suspect]
     Active Substance: ALFENTANIL
     Dosage: UNK
     Route: 042
  94. ALFENTANIL [Suspect]
     Active Substance: ALFENTANIL
     Dosage: UNK
     Route: 065
  95. ALFENTANIL [Suspect]
     Active Substance: ALFENTANIL
     Dosage: UNK
     Route: 065
  96. ALFENTANIL [Suspect]
     Active Substance: ALFENTANIL
     Dosage: UNK
     Route: 065
  97. ALFENTANIL [Suspect]
     Active Substance: ALFENTANIL
     Dosage: UNK
     Route: 042
     Dates: start: 2006
  98. ALFENTANIL [Suspect]
     Active Substance: ALFENTANIL
     Dosage: UNK
     Route: 042
  99. ALFENTANIL [Suspect]
     Active Substance: ALFENTANIL
     Dosage: UNK
     Route: 042
  100. ALFENTANIL [Suspect]
     Active Substance: ALFENTANIL
     Dosage: UNK
     Route: 042
  101. ALFENTANIL [Suspect]
     Active Substance: ALFENTANIL
     Dosage: UNK
     Route: 042
  102. ALFENTANIL [Suspect]
     Active Substance: ALFENTANIL
     Dosage: 120 DOSAGE FORM, INFUSION
     Route: 065
  103. ALFENTANIL [Suspect]
     Active Substance: ALFENTANIL
     Dosage: UNK
     Route: 042
     Dates: start: 2006
  104. ALFENTANIL [Suspect]
     Active Substance: ALFENTANIL
     Dosage: UNK (INFUSION)
     Route: 042
  105. TRICLOSAN [Suspect]
     Active Substance: TRICLOSAN
     Indication: Pneumonia
     Dosage: UNK
     Route: 003
  106. TRICLOSAN [Suspect]
     Active Substance: TRICLOSAN
     Indication: Ill-defined disorder
     Dosage: 24 DOSAGE FORM, UNK
     Route: 065
     Dates: start: 2006
  107. TRICLOSAN [Suspect]
     Active Substance: TRICLOSAN
     Dosage: UNK
     Route: 065
  108. TRICLOSAN [Suspect]
     Active Substance: TRICLOSAN
     Dosage: 24 DOSAGE FORM
     Route: 065
     Dates: start: 2006
  109. TRICLOSAN [Suspect]
     Active Substance: TRICLOSAN
     Dosage: 1 GRAM, QD
     Route: 042
  110. TRICLOSAN [Suspect]
     Active Substance: TRICLOSAN
     Dosage: UNK
     Route: 065
  111. TRICLOSAN [Suspect]
     Active Substance: TRICLOSAN
     Dosage: UNK
     Route: 003
  112. TRICLOSAN [Suspect]
     Active Substance: TRICLOSAN
     Dosage: UNK
     Route: 003
  113. TRICLOSAN [Suspect]
     Active Substance: TRICLOSAN
     Dosage: UNK
     Route: 065
     Dates: start: 2006
  114. TRICLOSAN [Suspect]
     Active Substance: TRICLOSAN
     Dosage: UNK
     Route: 003
     Dates: start: 2006
  115. ASPIRIN [Suspect]
     Active Substance: ASPIRIN
     Indication: Ill-defined disorder
     Dosage: UNK
     Route: 048
  116. ASPIRIN [Suspect]
     Active Substance: ASPIRIN
     Dosage: UNK
     Route: 065
  117. ASPIRIN [Suspect]
     Active Substance: ASPIRIN
     Dosage: UNK
     Route: 048
  118. ASPIRIN [Suspect]
     Active Substance: ASPIRIN
     Dosage: UNK
     Route: 048
  119. ASPIRIN [Suspect]
     Active Substance: ASPIRIN
     Dosage: UNK
     Route: 048
  120. ASPIRIN [Suspect]
     Active Substance: ASPIRIN
     Dosage: UNK
     Route: 048
  121. ASPIRIN [Suspect]
     Active Substance: ASPIRIN
     Dosage: UNK
     Route: 048
  122. BACTROBAN [Suspect]
     Active Substance: MUPIROCIN\MUPIROCIN CALCIUM
     Indication: Pneumonia
     Dosage: UNK
     Route: 065
  123. BACTROBAN [Suspect]
     Active Substance: MUPIROCIN\MUPIROCIN CALCIUM
     Indication: Ill-defined disorder
     Dosage: UNK, 10ML/50% 8MMOLS/50MLS
     Route: 065
     Dates: start: 2006
  124. BACTROBAN [Suspect]
     Active Substance: MUPIROCIN\MUPIROCIN CALCIUM
     Dosage: UNK, (10ML/50% 8MMOLS/50MLS)
     Route: 042
     Dates: start: 2006
  125. BACTROBAN [Suspect]
     Active Substance: MUPIROCIN\MUPIROCIN CALCIUM
     Dosage: UNK, (10ML/50% 8MMOLS/50MLS)
     Route: 061
     Dates: start: 2006
  126. BACTROBAN [Suspect]
     Active Substance: MUPIROCIN\MUPIROCIN CALCIUM
     Dosage: UNK
     Route: 065
     Dates: start: 2006
  127. BACTROBAN [Suspect]
     Active Substance: MUPIROCIN\MUPIROCIN CALCIUM
     Dosage: UNK,UNK,50 UNITS/50ML
     Route: 042
  128. BACTROBAN [Suspect]
     Active Substance: MUPIROCIN\MUPIROCIN CALCIUM
     Dosage: UNK,UNK,50 UNITS/50ML
     Route: 042
  129. BACTROBAN [Suspect]
     Active Substance: MUPIROCIN\MUPIROCIN CALCIUM
     Dosage: UNK
     Route: 065
     Dates: start: 2006
  130. BACTROBAN [Suspect]
     Active Substance: MUPIROCIN\MUPIROCIN CALCIUM
     Dosage: UNK
     Route: 065
     Dates: start: 2006
  131. BACTROBAN [Suspect]
     Active Substance: MUPIROCIN\MUPIROCIN CALCIUM
     Dosage: UNK
     Route: 065
     Dates: start: 2006
  132. BACTROBAN [Suspect]
     Active Substance: MUPIROCIN\MUPIROCIN CALCIUM
     Dosage: UNK
     Route: 065
     Dates: start: 2006
  133. BACTROBAN [Suspect]
     Active Substance: MUPIROCIN\MUPIROCIN CALCIUM
     Dosage: UNK, (10ML/50% 8MMOLS/50MLS)
     Route: 042
     Dates: start: 2006
  134. BACTROBAN [Suspect]
     Active Substance: MUPIROCIN\MUPIROCIN CALCIUM
     Dosage: UNK
     Route: 065
     Dates: start: 2006
  135. BACTROBAN [Suspect]
     Active Substance: MUPIROCIN\MUPIROCIN CALCIUM
     Dosage: UNK,10ML/50% 8MMOLS/50MLS;
     Route: 065
     Dates: start: 2006
  136. CALCIUM CHLORIDE [Suspect]
     Active Substance: CALCIUM CHLORIDE
     Indication: Ill-defined disorder
     Dosage: UNK
     Route: 042
  137. CALCIUM CHLORIDE [Suspect]
     Active Substance: CALCIUM CHLORIDE
     Indication: Pneumonia
     Dosage: 10 MILLILITER, QD
     Route: 042
     Dates: start: 2006
  138. CALCIUM CHLORIDE [Suspect]
     Active Substance: CALCIUM CHLORIDE
     Dosage: 120 MILLILITER (10 ML,UNK (DAILY DOSE: 10 MILLILITRE)
     Route: 042
     Dates: start: 2006
  139. CALCIUM CHLORIDE [Suspect]
     Active Substance: CALCIUM CHLORIDE
     Dosage: 10 MILLILITER, QD
     Route: 042
     Dates: start: 2006
  140. CALCIUM CHLORIDE [Suspect]
     Active Substance: CALCIUM CHLORIDE
     Dosage: 120 DOSAGE FORM
     Route: 065
  141. CALCIUM CHLORIDE [Suspect]
     Active Substance: CALCIUM CHLORIDE
     Dosage: UNK
     Route: 065
  142. CALCIUM CHLORIDE [Suspect]
     Active Substance: CALCIUM CHLORIDE
     Dosage: UNK
     Route: 065
     Dates: start: 2006
  143. CALCIUM CHLORIDE [Suspect]
     Active Substance: CALCIUM CHLORIDE
     Dosage: 10 MILLILITER, QD
     Route: 065
     Dates: start: 2006
  144. CALCIUM CHLORIDE [Suspect]
     Active Substance: CALCIUM CHLORIDE
     Dosage: UNK
     Route: 065
     Dates: start: 2006
  145. CALCIUM CHLORIDE [Suspect]
     Active Substance: CALCIUM CHLORIDE
     Dosage: UNK
     Route: 042
  146. CALCIUM CHLORIDE [Suspect]
     Active Substance: CALCIUM CHLORIDE
     Dosage: 120 DOSAGE FORM (10 ML,UNK (DAILY DOSE: 10 MILLILITRE(S))
     Route: 042
     Dates: start: 2006
  147. CALCIUM CHLORIDE [Suspect]
     Active Substance: CALCIUM CHLORIDE
     Dosage: 40 MILLILITER, PER DAY, (10 ML)
     Route: 065
     Dates: start: 2006
  148. CALCIUM CHLORIDE [Suspect]
     Active Substance: CALCIUM CHLORIDE
     Dosage: UNK
     Route: 065
     Dates: start: 2006
  149. CALCIUM CHLORIDE [Suspect]
     Active Substance: CALCIUM CHLORIDE
     Dosage: UNK
  150. CALCIUM GLUCONATE [Suspect]
     Active Substance: CALCIUM GLUCONATE
     Indication: Pneumonia
     Dosage: 10 DOSAGE FORM, QD
     Route: 042
  151. CALCIUM GLUCONATE [Suspect]
     Active Substance: CALCIUM GLUCONATE
     Indication: Ill-defined disorder
     Dosage: 10 MILLILITER, QD
     Route: 042
     Dates: start: 2006
  152. CALCIUM GLUCONATE [Suspect]
     Active Substance: CALCIUM GLUCONATE
     Dosage: UNK
     Route: 065
  153. CALCIUM GLUCONATE [Suspect]
     Active Substance: CALCIUM GLUCONATE
     Dosage: 10 MILLILITER, QD
     Route: 042
     Dates: start: 2006
  154. CALCIUM GLUCONATE [Suspect]
     Active Substance: CALCIUM GLUCONATE
     Dosage: 10 MILLILITER, QD
     Route: 042
     Dates: start: 2006
  155. CALCIUM GLUCONATE [Suspect]
     Active Substance: CALCIUM GLUCONATE
     Dosage: 10 MILLILITER, QD
     Route: 042
     Dates: start: 2006
  156. CALCIUM GLUCONATE [Suspect]
     Active Substance: CALCIUM GLUCONATE
     Dosage: 10 MILLILITER
     Route: 042
     Dates: start: 2006
  157. CALCIUM GLUCONATE [Suspect]
     Active Substance: CALCIUM GLUCONATE
     Dosage: 10 MILLILITER
     Route: 042
     Dates: start: 2006
  158. CANRENOIC ACID [Suspect]
     Active Substance: CANRENOIC ACID
     Indication: Ill-defined disorder
     Dosage: UNK
     Route: 065
  159. ROCEPHIN [Suspect]
     Active Substance: CEFTRIAXONE SODIUM
     Indication: Ill-defined disorder
     Dosage: UNK
     Route: 042
     Dates: start: 2006
  160. ROCEPHIN [Suspect]
     Active Substance: CEFTRIAXONE SODIUM
     Indication: Pneumonia
     Dosage: 2 MILLIGRAM, QD
     Route: 042
     Dates: start: 2006
  161. ROCEPHIN [Suspect]
     Active Substance: CEFTRIAXONE SODIUM
     Dosage: 2 GRAM
     Route: 042
     Dates: start: 2006
  162. ROCEPHIN [Suspect]
     Active Substance: CEFTRIAXONE SODIUM
     Dosage: 2 GRAM
     Route: 042
     Dates: start: 2006
  163. ROCEPHIN [Suspect]
     Active Substance: CEFTRIAXONE SODIUM
     Dosage: UNK
     Route: 065
  164. ROCEPHIN [Suspect]
     Active Substance: CEFTRIAXONE SODIUM
     Dosage: 2 GRAM
     Route: 042
  165. ROCEPHIN [Suspect]
     Active Substance: CEFTRIAXONE SODIUM
     Dosage: 2 MILLIGRAM, QD
     Route: 042
     Dates: start: 2006
  166. ROCEPHIN [Suspect]
     Active Substance: CEFTRIAXONE SODIUM
     Dosage: 2 MILLIGRAM, QD
     Route: 042
     Dates: start: 2006
  167. ROCEPHIN [Suspect]
     Active Substance: CEFTRIAXONE SODIUM
     Dosage: 2 MILLIGRAM, QD
     Route: 042
     Dates: start: 2006
  168. ROCEPHIN [Suspect]
     Active Substance: CEFTRIAXONE SODIUM
     Dosage: 2 MILLIGRAM, QD
     Route: 042
     Dates: start: 2006
  169. ROCEPHIN [Suspect]
     Active Substance: CEFTRIAXONE SODIUM
     Dosage: 2 GRAM, QD
     Route: 042
     Dates: start: 2006
  170. CHLORPHENIRAMINE MALEATE [Suspect]
     Active Substance: CHLORPHENIRAMINE MALEATE
     Indication: Pneumonia
     Dosage: 10 MILLIGRAM, QD
     Route: 042
  171. CHLORPHENIRAMINE MALEATE [Suspect]
     Active Substance: CHLORPHENIRAMINE MALEATE
     Indication: Toxic epidermal necrolysis
     Dosage: 10 MILLIGRAM, QID (DAILY DOSE: 40 MG)
     Route: 042
     Dates: start: 2006
  172. CHLORPHENIRAMINE MALEATE [Suspect]
     Active Substance: CHLORPHENIRAMINE MALEATE
     Indication: Ill-defined disorder
     Dosage: 10 MILLIGRAM, QID
     Route: 042
     Dates: start: 2006
  173. CHLORPHENIRAMINE MALEATE [Suspect]
     Active Substance: CHLORPHENIRAMINE MALEATE
     Dosage: 10 MILLIGRAM, QID
     Route: 042
     Dates: start: 2006
  174. CHLORPHENIRAMINE MALEATE [Suspect]
     Active Substance: CHLORPHENIRAMINE MALEATE
     Dosage: 10 MILLIGRAM, TID
     Route: 042
  175. CHLORPHENIRAMINE MALEATE [Suspect]
     Active Substance: CHLORPHENIRAMINE MALEATE
     Dosage: 40 MILLIGRAM, QD
     Route: 065
  176. CHLORPHENIRAMINE MALEATE [Suspect]
     Active Substance: CHLORPHENIRAMINE MALEATE
     Dosage: 10 MILLIGRAM
     Route: 042
  177. CHLORPHENIRAMINE MALEATE [Suspect]
     Active Substance: CHLORPHENIRAMINE MALEATE
     Dosage: 10 MILLIGRAM, QID
     Route: 042
  178. CHLORPHENIRAMINE MALEATE [Suspect]
     Active Substance: CHLORPHENIRAMINE MALEATE
     Dosage: 10 MILLIGRAM, QID
     Route: 042
     Dates: start: 2006
  179. CHLORPHENIRAMINE MALEATE [Suspect]
     Active Substance: CHLORPHENIRAMINE MALEATE
     Dosage: UNK
     Route: 065
  180. CHLORPHENIRAMINE MALEATE [Suspect]
     Active Substance: CHLORPHENIRAMINE MALEATE
     Dosage: 10 MILLIGRAM, QD
     Route: 042
  181. CHLORPHENIRAMINE MALEATE [Suspect]
     Active Substance: CHLORPHENIRAMINE MALEATE
     Dosage: 10 MILLIGRAM, QID
     Route: 042
     Dates: start: 2006
  182. CHLORPHENIRAMINE MALEATE [Suspect]
     Active Substance: CHLORPHENIRAMINE MALEATE
     Dosage: 10 MILLIGRAM, QD
     Route: 042
     Dates: start: 2006
  183. CHLORPHENIRAMINE MALEATE [Suspect]
     Active Substance: CHLORPHENIRAMINE MALEATE
     Dosage: 40 MILLIGRAM, QD
     Route: 065
  184. CHLORPHENIRAMINE MALEATE [Suspect]
     Active Substance: CHLORPHENIRAMINE MALEATE
     Dosage: 10 MILLIGRAM, QID
     Route: 042
  185. CHLORPHENIRAMINE MALEATE [Suspect]
     Active Substance: CHLORPHENIRAMINE MALEATE
     Dosage: 40 MILLIGRAM, PER DAY, (10 MG, QID)
     Route: 042
     Dates: start: 2006
  186. CIPROFLOXACIN [Suspect]
     Active Substance: CIPROFLOXACIN
     Indication: Ill-defined disorder
     Dosage: 400 MILLIGRAM, QD
     Route: 042
  187. CIPROFLOXACIN [Suspect]
     Active Substance: CIPROFLOXACIN
     Dosage: 400 MILLIGRAM, QD
     Route: 042
  188. CIPROFLOXACIN [Suspect]
     Active Substance: CIPROFLOXACIN
     Dosage: 400 MILLIGRAM, QD
     Route: 042
  189. CIPROFLOXACIN [Suspect]
     Active Substance: CIPROFLOXACIN
     Dosage: UNK
     Route: 065
  190. CIPROFLOXACIN [Suspect]
     Active Substance: CIPROFLOXACIN
     Dosage: 400 MILLIGRAM, QD
     Route: 042
  191. CIPROFLOXACIN [Suspect]
     Active Substance: CIPROFLOXACIN
     Dosage: 400 MILLIGRAM, QD,DAILY DOSE: 400 MILLIGRAM(S)
     Route: 042
  192. CIPROFLOXACIN [Suspect]
     Active Substance: CIPROFLOXACIN
     Dosage: 400 MILLIGRAM, QD
     Route: 065
  193. CIPROFLOXACIN [Suspect]
     Active Substance: CIPROFLOXACIN
     Dosage: 400 MILLIGRAM, QD
     Route: 042
  194. CIPROFLOXACIN [Suspect]
     Active Substance: CIPROFLOXACIN
     Dosage: 400 MILLIGRAM, QD
     Route: 042
  195. CIPROFLOXACIN [Suspect]
     Active Substance: CIPROFLOXACIN
     Dosage: 400 MILLIGRAM, QD
     Route: 042
  196. CIPROFLOXACIN [Suspect]
     Active Substance: CIPROFLOXACIN
     Dosage: 400 MILLIGRAM, QD
     Route: 042
  197. CITRIC ACID MONOHYDRATE\SODIUM BICARBONATE\TARTARIC ACID [Suspect]
     Active Substance: CITRIC ACID MONOHYDRATE\SODIUM BICARBONATE\TARTARIC ACID
     Indication: Ill-defined disorder
     Dosage: UNK
     Route: 065
  198. CITRIC ACID MONOHYDRATE\SODIUM BICARBONATE\TARTARIC ACID [Suspect]
     Active Substance: CITRIC ACID MONOHYDRATE\SODIUM BICARBONATE\TARTARIC ACID
     Indication: Pneumonia
     Dosage: 100 MILLIGRAM, QD
     Route: 048
     Dates: start: 2006
  199. ANHYDROUS CITRIC ACID [Suspect]
     Active Substance: ANHYDROUS CITRIC ACID
     Indication: Ill-defined disorder
     Dosage: 100 MILLIGRAM, UNK
     Route: 048
     Dates: start: 2006
  200. ANHYDROUS CITRIC ACID [Suspect]
     Active Substance: ANHYDROUS CITRIC ACID
     Indication: Pneumonia
     Dosage: 100 MILLIGRAM, QD
     Route: 048
     Dates: start: 2006
  201. ANHYDROUS CITRIC ACID [Suspect]
     Active Substance: ANHYDROUS CITRIC ACID
     Dosage: 100 MILLIGRAM, QD
     Route: 048
     Dates: start: 2006
  202. ANHYDROUS CITRIC ACID [Suspect]
     Active Substance: ANHYDROUS CITRIC ACID
     Dosage: 100 MILLIGRAM, DAILY
     Route: 065
     Dates: start: 2006
  203. ANHYDROUS CITRIC ACID [Suspect]
     Active Substance: ANHYDROUS CITRIC ACID
     Dosage: 100 MILLIGRAM, DAILY
     Route: 065
  204. ANHYDROUS CITRIC ACID [Suspect]
     Active Substance: ANHYDROUS CITRIC ACID
     Dosage: 100 MILLIGRAM, QD
     Route: 048
     Dates: start: 2006
  205. ANHYDROUS CITRIC ACID [Suspect]
     Active Substance: ANHYDROUS CITRIC ACID
     Dosage: 100 MILLIGRAM, QD
     Route: 048
     Dates: start: 2006
  206. ANHYDROUS CITRIC ACID [Suspect]
     Active Substance: ANHYDROUS CITRIC ACID
     Dosage: 100 MILLIGRAM, QD
     Route: 048
  207. ENOXAPARIN SODIUM [Suspect]
     Active Substance: ENOXAPARIN SODIUM
     Indication: Pneumonia
     Dosage: UNK
     Route: 065
  208. ENOXAPARIN SODIUM [Suspect]
     Active Substance: ENOXAPARIN SODIUM
     Indication: Ill-defined disorder
     Dosage: 20 MILLIGRAM, QD
     Route: 058
     Dates: start: 2006
  209. ENOXAPARIN SODIUM [Suspect]
     Active Substance: ENOXAPARIN SODIUM
     Dosage: 20 MILLIGRAM, QD
     Route: 065
  210. ENOXAPARIN SODIUM [Suspect]
     Active Substance: ENOXAPARIN SODIUM
     Dosage: UNK
     Route: 058
  211. ENOXAPARIN SODIUM [Suspect]
     Active Substance: ENOXAPARIN SODIUM
     Dosage: 20 MILLIGRAM, QD ((DAILY DOSE: 20 MILLIGRAM(S))
     Route: 058
     Dates: start: 2006
  212. ENOXAPARIN SODIUM [Suspect]
     Active Substance: ENOXAPARIN SODIUM
     Dosage: 20 MILLIGRAM, QD
     Route: 058
     Dates: start: 2006
  213. ENOXAPARIN SODIUM [Suspect]
     Active Substance: ENOXAPARIN SODIUM
     Dosage: 20 MILLIGRAM, QD
     Route: 058
     Dates: start: 2006
  214. ENOXAPARIN SODIUM [Suspect]
     Active Substance: ENOXAPARIN SODIUM
     Dosage: 20 MILLIGRAM, QD
     Route: 058
     Dates: start: 2006
  215. ENOXAPARIN SODIUM [Suspect]
     Active Substance: ENOXAPARIN SODIUM
     Dosage: 20 MILLIGRAM, QD
     Route: 065
  216. ENOXAPARIN SODIUM [Suspect]
     Active Substance: ENOXAPARIN SODIUM
     Dosage: UNK
     Route: 065
  217. ENOXAPARIN SODIUM [Suspect]
     Active Substance: ENOXAPARIN SODIUM
     Dosage: 20 MILLIGRAM, QD
     Route: 048
  218. ENOXAPARIN SODIUM [Suspect]
     Active Substance: ENOXAPARIN SODIUM
     Dosage: 20 MILLIGRAM, QD
     Route: 058
     Dates: start: 2006
  219. ENOXAPARIN SODIUM [Suspect]
     Active Substance: ENOXAPARIN SODIUM
     Dosage: 20 MILLIGRAM, QD
     Route: 048
     Dates: start: 2006
  220. POTASSIUM PHOSPHATE, DIBASIC [Suspect]
     Active Substance: POTASSIUM PHOSPHATE, DIBASIC
     Indication: Ill-defined disorder
     Dosage: UNK
     Route: 065
     Dates: start: 2006
  221. POTASSIUM PHOSPHATE, DIBASIC [Suspect]
     Active Substance: POTASSIUM PHOSPHATE, DIBASIC
     Indication: Pneumonia
     Dosage: UNK
     Route: 065
  222. DOBUTAMINE [Suspect]
     Active Substance: DOBUTAMINE HYDROCHLORIDE
     Indication: Ill-defined disorder
     Dosage: UNK
     Route: 065
  223. DOBUTAMINE [Suspect]
     Active Substance: DOBUTAMINE HYDROCHLORIDE
     Indication: Pneumonia
     Dosage: UNK
     Route: 041
     Dates: start: 2006
  224. DOBUTAMINE [Suspect]
     Active Substance: DOBUTAMINE HYDROCHLORIDE
     Dosage: UNK
     Route: 065
     Dates: start: 2006
  225. SILVER SULFADIAZINE [Suspect]
     Active Substance: SILVER SULFADIAZINE
     Indication: Ill-defined disorder
     Dosage: UNK
     Route: 061
     Dates: start: 2006
  226. SILVER SULFADIAZINE [Suspect]
     Active Substance: SILVER SULFADIAZINE
     Indication: Pneumonia
     Dosage: UNK
     Route: 065
  227. SILVER SULFADIAZINE [Suspect]
     Active Substance: SILVER SULFADIAZINE
     Dosage: UNK
     Route: 065
  228. SILVER SULFADIAZINE [Suspect]
     Active Substance: SILVER SULFADIAZINE
     Dosage: UNK
     Route: 061
     Dates: start: 2006
  229. SILVER SULFADIAZINE [Suspect]
     Active Substance: SILVER SULFADIAZINE
     Dosage: UNK
     Route: 061
  230. SILVER SULFADIAZINE [Suspect]
     Active Substance: SILVER SULFADIAZINE
     Dosage: UNK
     Route: 042
     Dates: start: 2006
  231. SILVER SULFADIAZINE [Suspect]
     Active Substance: SILVER SULFADIAZINE
     Dosage: UNK
     Route: 061
     Dates: start: 2006
  232. SILVER SULFADIAZINE [Suspect]
     Active Substance: SILVER SULFADIAZINE
     Dosage: UNK
     Route: 061
     Dates: start: 2006
  233. SILVER SULFADIAZINE [Suspect]
     Active Substance: SILVER SULFADIAZINE
     Dosage: UNK
     Route: 042
     Dates: start: 2006
  234. FLUCONAZOLE [Suspect]
     Active Substance: FLUCONAZOLE
     Indication: Pneumonia
     Dosage: 20 MILLIGRAM, QD
     Route: 065
  235. FLUCONAZOLE [Suspect]
     Active Substance: FLUCONAZOLE
     Dosage: 200 MILLIGRAM, QD
     Route: 042
     Dates: start: 2006
  236. FLUCONAZOLE [Suspect]
     Active Substance: FLUCONAZOLE
     Dosage: UNK
     Route: 065
  237. FLUCONAZOLE [Suspect]
     Active Substance: FLUCONAZOLE
     Dosage: UNK,DRUG DOSAGE FORM 230)
     Route: 065
  238. FLUCONAZOLE [Suspect]
     Active Substance: FLUCONAZOLE
     Dosage: 200 MILLIGRAM, QD
     Route: 042
     Dates: start: 2006
  239. FLUCONAZOLE [Suspect]
     Active Substance: FLUCONAZOLE
     Dosage: 200 MILLIGRAM, QD
     Route: 042
     Dates: start: 2006
  240. FLUCONAZOLE [Suspect]
     Active Substance: FLUCONAZOLE
     Dosage: UNK
     Route: 065
  241. FRAGMIN [Suspect]
     Active Substance: DALTEPARIN SODIUM
     Indication: Ill-defined disorder
     Dosage: UNK, QD
     Route: 065
  242. FRAGMIN [Suspect]
     Active Substance: DALTEPARIN SODIUM
     Indication: Pneumonia
     Dosage: 2500 INTERNATIONAL UNIT, DAILY
     Route: 058
     Dates: start: 2006
  243. FRAGMIN [Suspect]
     Active Substance: DALTEPARIN SODIUM
     Dosage: 200 INTERNATIONAL UNIT
     Route: 058
     Dates: start: 2006
  244. FRAGMIN [Suspect]
     Active Substance: DALTEPARIN SODIUM
     Dosage: 2500 INTERNATIONAL UNIT, QD
     Route: 065
     Dates: start: 2006
  245. FRAGMIN [Suspect]
     Active Substance: DALTEPARIN SODIUM
     Dosage: UNK
     Route: 065
  246. FRAGMIN [Suspect]
     Active Substance: DALTEPARIN SODIUM
     Dosage: 2500 UNK QD (IU/DL)
     Route: 058
     Dates: start: 2006
  247. FRAGMIN [Suspect]
     Active Substance: DALTEPARIN SODIUM
     Dosage: 200 INTERNATIONAL UNIT
     Route: 058
     Dates: start: 2006
  248. FRAGMIN [Suspect]
     Active Substance: DALTEPARIN SODIUM
     Dosage: 2500 INTERNATIONAL UNIT, QD
     Route: 065
     Dates: start: 2006
  249. FRAGMIN [Suspect]
     Active Substance: DALTEPARIN SODIUM
     Dosage: 200 INTERNATIONAL UNIT
     Route: 058
     Dates: start: 2006
  250. FRAGMIN [Suspect]
     Active Substance: DALTEPARIN SODIUM
     Dosage: 2500 INTERNATIONAL UNIT, QD
     Route: 058
     Dates: start: 2006
  251. FRAGMIN [Suspect]
     Active Substance: DALTEPARIN SODIUM
     Dosage: 2500 INTERNATIONAL UNIT, QD
     Route: 058
     Dates: start: 2006
  252. FRAGMIN [Suspect]
     Active Substance: DALTEPARIN SODIUM
     Dosage: 2500 INTERNATIONAL UNIT, QD, DAILY
     Route: 058
     Dates: start: 2006
  253. FRAGMIN [Suspect]
     Active Substance: DALTEPARIN SODIUM
     Dosage: 2500 INTERNATIONAL UNIT, QD
     Route: 065
     Dates: start: 2006
  254. FRAGMIN [Suspect]
     Active Substance: DALTEPARIN SODIUM
     Dosage: UNK, 1 PER DAY
     Route: 065
  255. FRAGMIN [Suspect]
     Active Substance: DALTEPARIN SODIUM
     Dosage: 200 INTERNATIONAL UNIT, QD
     Route: 065
     Dates: start: 2006
  256. FRAGMIN [Suspect]
     Active Substance: DALTEPARIN SODIUM
     Dosage: 1 DOSAGE FORM, PER DAY
     Route: 065
  257. FRAGMIN [Suspect]
     Active Substance: DALTEPARIN SODIUM
     Dosage: 2500 INTERNATIONAL UNIT
     Route: 058
  258. FRAGMIN [Suspect]
     Active Substance: DALTEPARIN SODIUM
     Dosage: UNK
     Route: 065
  259. GLUTAMIC ACID [Suspect]
     Active Substance: GLUTAMIC ACID
     Indication: Ill-defined disorder
     Dosage: UNK
     Route: 065
  260. GLUTAMIC ACID [Suspect]
     Active Substance: GLUTAMIC ACID
     Dosage: 10 MILLILITER, QD
     Route: 065
     Dates: start: 2006
  261. HEPARIN SODIUM [Suspect]
     Active Substance: HEPARIN SODIUM
     Indication: Ill-defined disorder
     Dosage: 3500 MICROGRAM, QD
     Route: 065
  262. HEPARIN SODIUM [Suspect]
     Active Substance: HEPARIN SODIUM
     Dosage: 4 MICROGRAM, QD
     Route: 065
  263. HEPARIN SODIUM [Suspect]
     Active Substance: HEPARIN SODIUM
     Dosage: UNK
     Route: 065
  264. HEPARIN SODIUM [Suspect]
     Active Substance: HEPARIN SODIUM
     Dosage: UNK
     Route: 065
     Dates: start: 2006
  265. HEPARIN SODIUM [Suspect]
     Active Substance: HEPARIN SODIUM
     Dosage: 3500 MICROGRAM, QD
     Route: 065
  266. HEPARIN SODIUM [Suspect]
     Active Substance: HEPARIN SODIUM
     Dosage: 3500 MICROGRAM, QD
     Route: 065
  267. HEPARIN SODIUM [Suspect]
     Active Substance: HEPARIN SODIUM
     Dosage: 3500 MICROGRAM, QD
     Route: 065
  268. INSULIN HUMAN [Suspect]
     Active Substance: INSULIN HUMAN
     Indication: Diabetes mellitus
     Dosage: UNK, SOLUTION FOR INFUSION
     Route: 042
  269. INSULIN HUMAN [Suspect]
     Active Substance: INSULIN HUMAN
     Indication: Pneumonia
     Dosage: UNK
     Route: 042
  270. INSULIN HUMAN [Suspect]
     Active Substance: INSULIN HUMAN
     Indication: Toxic epidermal necrolysis
     Dosage: 50 UNITS/ML, 124 DOSAGE FORM
     Route: 042
     Dates: start: 2006
  271. INSULIN HUMAN [Suspect]
     Active Substance: INSULIN HUMAN
     Dosage: UNK
     Route: 065
  272. INSULIN HUMAN [Suspect]
     Active Substance: INSULIN HUMAN
     Dosage: UNK
     Route: 042
     Dates: start: 2006
  273. INSULIN HUMAN [Suspect]
     Active Substance: INSULIN HUMAN
     Dosage: 50 MILLILITER, UNK
     Route: 042
  274. INSULIN HUMAN [Suspect]
     Active Substance: INSULIN HUMAN
     Dosage: UNK
     Route: 042
  275. INSULIN HUMAN [Suspect]
     Active Substance: INSULIN HUMAN
     Dosage: 50 UNITS/50ML, UNK
     Route: 042
  276. INSULIN HUMAN [Suspect]
     Active Substance: INSULIN HUMAN
     Dosage: UNK, SOLUTION FOR INFUSION
     Route: 065
  277. INSULIN HUMAN [Suspect]
     Active Substance: INSULIN HUMAN
     Dosage: 50 UNITS/50ML, UNK (IGA ANTICARDIOLIPIN UNIT)
     Route: 042
     Dates: start: 2006
  278. INSULIN HUMAN [Suspect]
     Active Substance: INSULIN HUMAN
     Dosage: UNK
     Route: 065
  279. INSULIN HUMAN [Suspect]
     Active Substance: INSULIN HUMAN
     Dosage: UNK
     Route: 065
  280. INSULIN HUMAN [Suspect]
     Active Substance: INSULIN HUMAN
     Dosage: UNK
     Route: 042
  281. INSULIN HUMAN [Suspect]
     Active Substance: INSULIN HUMAN
     Dosage: UNK
     Route: 042
  282. HYDROCORTISONE [Suspect]
     Active Substance: HYDROCORTISONE
     Indication: Ill-defined disorder
     Dosage: 100 MILLIGRAM, QD
     Route: 042
     Dates: start: 2006
  283. HYDROCORTISONE [Suspect]
     Active Substance: HYDROCORTISONE
     Indication: Pneumonia
     Dosage: 100 MILLIGRAM, QD
     Route: 048
     Dates: start: 2006
  284. HYDROCORTISONE [Suspect]
     Active Substance: HYDROCORTISONE
     Dosage: 100 MILLIGRAM, TOTAL
     Route: 042
     Dates: start: 2006
  285. HYDROCORTISONE [Suspect]
     Active Substance: HYDROCORTISONE
     Dosage: UNK
     Route: 065
     Dates: start: 2006
  286. HYDROCORTISONE [Suspect]
     Active Substance: HYDROCORTISONE
     Dosage: UNK (SOLUTION FOR INJECTION)
     Route: 065
  287. HYDROCORTISONE [Suspect]
     Active Substance: HYDROCORTISONE
     Dosage: 100 MILLIGRAM, TOTAL (SOLUTION FOR INJECTION)
     Route: 042
  288. HYDROCORTISONE [Suspect]
     Active Substance: HYDROCORTISONE
     Dosage: 100 MILLIGRAM, QD (POWDER FOR SOLUTION FOR INJECTION)
     Route: 048
  289. HYDROCORTISONE [Suspect]
     Active Substance: HYDROCORTISONE
     Dosage: 100 MILLIGRAM, QD (POWDER FOR SOLUTION FOR INJECTION)
     Route: 048
     Dates: start: 2006
  290. HYDROCORTISONE [Suspect]
     Active Substance: HYDROCORTISONE
     Dosage: UNK (SOLUTION FOR INJECTION)
     Route: 048
  291. HYDROCORTISONE [Suspect]
     Active Substance: HYDROCORTISONE
     Dosage: 100 MILLIGRAM, TOTAL (SOLUTION FOR INJECTION)
     Route: 042
     Dates: start: 2006
  292. HYDROCORTISONE [Suspect]
     Active Substance: HYDROCORTISONE
     Dosage: 100 MILLIGRAM, TOTAL (SOLUTION FOR INJECTION)
     Route: 065
  293. HYDROCORTISONE [Suspect]
     Active Substance: HYDROCORTISONE
     Dosage: UNK
     Route: 065
     Dates: start: 2006
  294. HYDROCORTISONE [Suspect]
     Active Substance: HYDROCORTISONE
     Dosage: 100 MILLIGRAM, QD (POWDER FOR SOLUTION FOR INJECTION)
     Route: 048
     Dates: start: 2006
  295. INNOHEP [Suspect]
     Active Substance: TINZAPARIN SODIUM
     Indication: Pneumonia
     Dosage: 3.5 MILLILITER, QD
     Route: 065
  296. INNOHEP [Suspect]
     Active Substance: TINZAPARIN SODIUM
     Indication: Ill-defined disorder
     Dosage: 3500 MICROGRAM, QD
     Route: 065
  297. INNOHEP [Suspect]
     Active Substance: TINZAPARIN SODIUM
     Dosage: 3500 MICROLITER
     Route: 065
  298. INNOHEP [Suspect]
     Active Substance: TINZAPARIN SODIUM
     Dosage: UNK
     Route: 065
  299. INNOHEP [Suspect]
     Active Substance: TINZAPARIN SODIUM
     Dosage: 4 MILLILITER, PER DAY
     Route: 065
  300. INNOHEP [Suspect]
     Active Substance: TINZAPARIN SODIUM
     Dosage: 3500 DOSAGE FORM, PER DAY
     Route: 065
     Dates: start: 2006
  301. INNOHEP [Suspect]
     Active Substance: TINZAPARIN SODIUM
     Dosage: 3500 MICROGRAM, ONCE A DAY
     Route: 065
     Dates: start: 2006
  302. INNOHEP [Suspect]
     Active Substance: TINZAPARIN SODIUM
     Dosage: 300 MILLIGRAM, DAILY
     Route: 065
     Dates: start: 2006
  303. INNOHEP [Suspect]
     Active Substance: TINZAPARIN SODIUM
     Dosage: 3500 MICROLITER PER
     Route: 065
     Dates: start: 2006
  304. INNOHEP [Suspect]
     Active Substance: TINZAPARIN SODIUM
     Dosage: 300 MILLIGRAM, DAILY
     Route: 065
     Dates: start: 2006
  305. INNOHEP [Suspect]
     Active Substance: TINZAPARIN SODIUM
     Dosage: 3500 MICROLITER PER
     Route: 065
     Dates: start: 2006
  306. LACTULOSE [Suspect]
     Active Substance: LACTULOSE
     Indication: Ill-defined disorder
     Dosage: 1 MILLILITER, QD
     Route: 065
  307. LACTULOSE [Suspect]
     Active Substance: LACTULOSE
     Indication: Pneumonia
     Dosage: 10 MILLILITER, QD
     Route: 065
  308. LACTULOSE [Suspect]
     Active Substance: LACTULOSE
     Dosage: 10 MILLILITER, QD
     Route: 065
     Dates: start: 2006
  309. LACTULOSE [Suspect]
     Active Substance: LACTULOSE
     Dosage: 3 GRAM, UNK
     Route: 065
  310. LACTULOSE [Suspect]
     Active Substance: LACTULOSE
     Dosage: 1 MILLILITER, QD
     Route: 065
     Dates: start: 2006
  311. LACTULOSE [Suspect]
     Active Substance: LACTULOSE
     Dosage: 10 MILLILITER
     Dates: start: 2006
  312. LACTULOSE [Suspect]
     Active Substance: LACTULOSE
     Dosage: 10 MILLILITER
     Route: 065
     Dates: start: 2006
  313. MAGNESIUM SULFATE [Suspect]
     Active Substance: MAGNESIUM SULFATE
     Indication: Ill-defined disorder
     Dosage: 10 MILLILITER, UNK (10 ML/50% 8 MMOLS/50ML)
     Route: 065
     Dates: start: 2006
  314. MAGNESIUM SULFATE [Suspect]
     Active Substance: MAGNESIUM SULFATE
     Indication: Pneumonia
     Dosage: UNK
     Route: 061
     Dates: start: 2006
  315. MAGNESIUM SULFATE [Suspect]
     Active Substance: MAGNESIUM SULFATE
     Dosage: UNK
     Route: 065
  316. MAGNESIUM SULFATE [Suspect]
     Active Substance: MAGNESIUM SULFATE
     Dosage: UNK
     Route: 065
  317. MAGNESIUM SULFATE [Suspect]
     Active Substance: MAGNESIUM SULFATE
     Dosage: UNK (10 ML/50% 8 MMOLS/50ML)
     Route: 061
  318. MAGNESIUM SULFATE [Suspect]
     Active Substance: MAGNESIUM SULFATE
     Dosage: 10 MILLILITER
     Route: 065
     Dates: start: 2006
  319. MAGNESIUM SULFATE [Suspect]
     Active Substance: MAGNESIUM SULFATE
     Dosage: UNK (10 ML/50% 8 MMOLS/50ML)
     Route: 061
  320. MAGNESIUM SULFATE [Suspect]
     Active Substance: MAGNESIUM SULFATE
     Dosage: UNK (10 ML/50% 8 MMOLS/50ML)
     Route: 065
  321. MIDODRINE [Suspect]
     Active Substance: MIDODRINE
     Indication: Ill-defined disorder
     Dosage: UNK
     Route: 048
  322. MIDODRINE [Suspect]
     Active Substance: MIDODRINE
     Dosage: UNK
     Route: 048
  323. MIDODRINE [Suspect]
     Active Substance: MIDODRINE
     Dosage: UNK
     Route: 048
  324. MIDODRINE [Suspect]
     Active Substance: MIDODRINE
     Dosage: UNK
     Route: 065
  325. MIDODRINE [Suspect]
     Active Substance: MIDODRINE
     Dosage: UNK
     Route: 048
  326. VITAMIN B COMPLEX [Suspect]
     Active Substance: CYANOCOBALAMIN\DEXPANTHENOL\NIACINAMIDE\PYRIDOXINE HYDROCHLORIDE\RIBOFLAVIN 5^-PHOSPHATE SODIUM\THIA
     Indication: Ill-defined disorder
     Dosage: UNK
     Route: 065
  327. NICOTINAMIDE [Suspect]
     Active Substance: NIACINAMIDE
     Indication: Ill-defined disorder
     Dosage: UNK
     Route: 065
  328. NOREPINEPHRINE [Suspect]
     Active Substance: NOREPINEPHRINE
     Indication: Ill-defined disorder
     Dosage: UNK
     Route: 065
  329. NOREPINEPHRINE [Suspect]
     Active Substance: NOREPINEPHRINE
     Indication: Pneumonia
     Dosage: UNK
     Route: 065
  330. NOREPINEPHRINE [Suspect]
     Active Substance: NOREPINEPHRINE
     Dosage: UNK, QD
     Route: 065
     Dates: start: 2006
  331. NOREPINEPHRINE [Suspect]
     Active Substance: NOREPINEPHRINE
     Dosage: UNK
     Route: 065
  332. NOREPINEPHRINE [Suspect]
     Active Substance: NOREPINEPHRINE
     Dosage: UNK
     Route: 065
     Dates: start: 2006
  333. NOREPINEPHRINE [Suspect]
     Active Substance: NOREPINEPHRINE
     Dosage: UNK
     Route: 065
     Dates: start: 2006
  334. OMEPRAZOLE [Suspect]
     Active Substance: OMEPRAZOLE
     Indication: Pneumonia
     Dosage: 40 MILLIGRAM, QD
     Route: 042
  335. OMEPRAZOLE [Suspect]
     Active Substance: OMEPRAZOLE
     Dosage: 40 MILLIGRAM,((40 MG,UNK (DAILY DOSE: 40 MILLIGRAM(S))
     Route: 042
     Dates: start: 2006
  336. OMEPRAZOLE [Suspect]
     Active Substance: OMEPRAZOLE
     Dosage: 40 MILLIGRAM
     Route: 042
     Dates: start: 2006
  337. OMEPRAZOLE [Suspect]
     Active Substance: OMEPRAZOLE
     Dosage: 40 MILLIGRAM
     Route: 042
  338. OMEPRAZOLE [Suspect]
     Active Substance: OMEPRAZOLE
     Dosage: 40 MILLIGRAM
     Route: 042
  339. ACETAMINOPHEN [Suspect]
     Active Substance: ACETAMINOPHEN
     Indication: Pneumonia
     Dosage: UNK
     Route: 065
  340. ACETAMINOPHEN [Suspect]
     Active Substance: ACETAMINOPHEN
     Indication: Hypersensitivity
     Dosage: 20 MILLIGRAM, BID
     Route: 065
     Dates: start: 2006
  341. ACETAMINOPHEN [Suspect]
     Active Substance: ACETAMINOPHEN
     Indication: Ill-defined disorder
     Dosage: UNK
     Route: 042
  342. ACETAMINOPHEN [Suspect]
     Active Substance: ACETAMINOPHEN
     Dosage: UNK
     Route: 042
  343. ACETAMINOPHEN [Suspect]
     Active Substance: ACETAMINOPHEN
     Dosage: 50 MILLILITER, 50 ML (50 UNITS/50ML)
     Route: 042
     Dates: start: 2006
  344. ACETAMINOPHEN [Suspect]
     Active Substance: ACETAMINOPHEN
     Dosage: UNK, 50 UNITS/VIAL
     Route: 065
     Dates: start: 2006
  345. PHYTONADIONE [Suspect]
     Active Substance: PHYTONADIONE
     Indication: Pneumonia
     Dosage: UNK
     Route: 065
     Dates: start: 2006
  346. PHYTONADIONE [Suspect]
     Active Substance: PHYTONADIONE
     Dosage: UNK
     Route: 065
  347. POTASSIUM CHLORIDE [Suspect]
     Active Substance: POTASSIUM CHLORIDE
     Indication: Ill-defined disorder
     Dosage: 40 MMOL/100ML, UNK
     Route: 065
  348. POTASSIUM CHLORIDE [Suspect]
     Active Substance: POTASSIUM CHLORIDE
     Dosage: 6 DOSAGE FORM, QD
     Route: 061
     Dates: start: 2006
  349. POTASSIUM CHLORIDE [Suspect]
     Active Substance: POTASSIUM CHLORIDE
     Dosage: UNK, TID
     Route: 065
  350. POTASSIUM CHLORIDE [Suspect]
     Active Substance: POTASSIUM CHLORIDE
     Dosage: 2 DOSAGE FORM, QD (INFUSION)
     Route: 065
  351. POTASSIUM CHLORIDE [Suspect]
     Active Substance: POTASSIUM CHLORIDE
     Dosage: UNK
     Route: 065
  352. POTASSIUM CHLORIDE [Suspect]
     Active Substance: POTASSIUM CHLORIDE
     Dosage: 2 DOSAGE FORM, TID
     Route: 061
     Dates: start: 2006
  353. POTASSIUM CHLORIDE [Suspect]
     Active Substance: POTASSIUM CHLORIDE
     Dosage: 2 DOSAGE FORM, TID
     Route: 065
     Dates: start: 2006
  354. POTASSIUM CHLORIDE [Suspect]
     Active Substance: POTASSIUM CHLORIDE
     Dosage: 120 MMOL,PER DAY(40 MMOL/100ML)
     Route: 065
     Dates: start: 2006
  355. POTASSIUM CHLORIDE [Suspect]
     Active Substance: POTASSIUM CHLORIDE
     Dosage: 6 DOSAGE FORM, QD
     Route: 065
  356. POTASSIUM CHLORIDE [Suspect]
     Active Substance: POTASSIUM CHLORIDE
     Dosage: 2 DOSAGE FORM, QD
     Route: 065
  357. POTASSIUM CHLORIDE [Suspect]
     Active Substance: POTASSIUM CHLORIDE
     Dosage: UNK
     Route: 065
  358. POTASSIUM PHOSPHATE, MONOBASIC [Suspect]
     Active Substance: POTASSIUM PHOSPHATE, MONOBASIC
     Indication: Pneumonia
     Dosage: UNK
     Route: 065
     Dates: start: 2006
  359. POTASSIUM PHOSPHATE, MONOBASIC [Suspect]
     Active Substance: POTASSIUM PHOSPHATE, MONOBASIC
     Dosage: UNK
     Route: 065
  360. POTASSIUM IODIDE [Suspect]
     Active Substance: POTASSIUM IODIDE
     Indication: Pneumonia
     Dosage: UNK
     Route: 065
     Dates: start: 2006
  361. POTASSIUM PHOSPHATES [Suspect]
     Active Substance: POTASSIUM PHOSPHATE, DIBASIC\POTASSIUM PHOSPHATE, MONOBASIC
     Indication: Ill-defined disorder
     Dosage: UNK
     Route: 065
     Dates: start: 2006
  362. POTASSIUM PHOSPHATES [Suspect]
     Active Substance: POTASSIUM PHOSPHATE, DIBASIC\POTASSIUM PHOSPHATE, MONOBASIC
     Indication: Pneumonia
     Dosage: UNK
     Route: 065
  363. POTASSIUM PHOSPHATES [Suspect]
     Active Substance: POTASSIUM PHOSPHATE, DIBASIC\POTASSIUM PHOSPHATE, MONOBASIC
     Dosage: UNK
     Route: 065
     Dates: start: 2006
  364. POTASSIUM PHOSPHATES [Suspect]
     Active Substance: POTASSIUM PHOSPHATE, DIBASIC\POTASSIUM PHOSPHATE, MONOBASIC
     Dosage: UNK
     Route: 065
     Dates: start: 2006
  365. POTASSIUM PHOSPHATES [Suspect]
     Active Substance: POTASSIUM PHOSPHATE, DIBASIC\POTASSIUM PHOSPHATE, MONOBASIC
     Dosage: UNK
     Route: 065
  366. POTASSIUM PHOSPHATES [Suspect]
     Active Substance: POTASSIUM PHOSPHATE, DIBASIC\POTASSIUM PHOSPHATE, MONOBASIC
     Dosage: UNK
     Route: 065
     Dates: start: 2006
  367. POTASSIUM PHOSPHATES [Suspect]
     Active Substance: POTASSIUM PHOSPHATE, DIBASIC\POTASSIUM PHOSPHATE, MONOBASIC
     Dosage: UNK
     Route: 065
  368. PROPOFOL [Suspect]
     Active Substance: PROPOFOL
     Indication: Pneumonia
     Dosage: UNK
     Route: 042
     Dates: start: 2006
  369. PROPOFOL [Suspect]
     Active Substance: PROPOFOL
     Indication: Ill-defined disorder
     Dosage: UNK
     Route: 065
     Dates: start: 2006
  370. RIBOFLAVIN [Suspect]
     Active Substance: RIBOFLAVIN
     Indication: Ill-defined disorder
     Dosage: UNK
     Route: 065
  371. ALBUTEROL SULFATE [Suspect]
     Active Substance: ALBUTEROL SULFATE
     Indication: Pneumonia
     Dosage: 1 DOSAGE FORM, PRN
     Route: 065
  372. ALBUTEROL SULFATE [Suspect]
     Active Substance: ALBUTEROL SULFATE
     Indication: Ill-defined disorder
     Dosage: UNK, PRN
     Route: 065
  373. ALBUTEROL SULFATE [Suspect]
     Active Substance: ALBUTEROL SULFATE
     Dosage: 1 DOSAGE FORM, PRN, AS NECESSARY (NEBULISER)
     Route: 065
     Dates: start: 2006
  374. ALBUTEROL SULFATE [Suspect]
     Active Substance: ALBUTEROL SULFATE
     Dosage: UNK
     Route: 065
  375. ALBUTEROL SULFATE [Suspect]
     Active Substance: ALBUTEROL SULFATE
     Dosage: UNK
     Route: 065
  376. ALBUTEROL SULFATE [Suspect]
     Active Substance: ALBUTEROL SULFATE
     Dosage: UNK
     Route: 065
     Dates: start: 2006
  377. POTASSIUM BICARBONATE\POTASSIUM CHLORIDE [Suspect]
     Active Substance: POTASSIUM BICARBONATE\POTASSIUM CHLORIDE
     Indication: Pneumonia
     Dosage: 2 DOSAGE FORM, TID
     Route: 061
     Dates: start: 2006
  378. POTASSIUM BICARBONATE\POTASSIUM CHLORIDE [Suspect]
     Active Substance: POTASSIUM BICARBONATE\POTASSIUM CHLORIDE
     Dosage: 6 DOSAGE FORM, QD
     Route: 065
  379. POTASSIUM BICARBONATE\POTASSIUM CHLORIDE [Suspect]
     Active Substance: POTASSIUM BICARBONATE\POTASSIUM CHLORIDE
     Dosage: 2 DOSAGE FORM, QD, DAILY (DOSE TEXT: 2 DL 3/1DAYS)
     Route: 065
  380. POTASSIUM BICARBONATE\POTASSIUM CHLORIDE [Suspect]
     Active Substance: POTASSIUM BICARBONATE\POTASSIUM CHLORIDE
     Dosage: 6 DOSAGE FORM, PER DAY, (2 DOSAGE FORM, 3 TIMES A DAY)
     Route: 061
     Dates: start: 2006
  381. SIMVASTATIN [Suspect]
     Active Substance: SIMVASTATIN
     Indication: Pneumonia
     Dosage: 40 MILLIGRAM, BID
     Route: 042
     Dates: start: 2006
  382. SIMVASTATIN [Suspect]
     Active Substance: SIMVASTATIN
     Dosage: 40 MILLIGRAM, QD
     Route: 042
     Dates: start: 2006
  383. SIMVASTATIN [Suspect]
     Active Substance: SIMVASTATIN
     Dosage: 40 MILLIGRAM, QD
     Route: 065
     Dates: start: 2006
  384. SIMVASTATIN [Suspect]
     Active Substance: SIMVASTATIN
     Dosage: 20 MILLIGRAM, BID
     Route: 042
     Dates: start: 2006
  385. SIMVASTATIN [Suspect]
     Active Substance: SIMVASTATIN
     Dosage: 80 MILLIGRAM
     Route: 042
  386. SODIUM CHLORIDE [Suspect]
     Active Substance: SODIUM CHLORIDE
     Indication: Pneumonia
     Dosage: 0.9 PERCENT, UNK
     Route: 042
  387. SODIUM CHLORIDE [Suspect]
     Active Substance: SODIUM CHLORIDE
     Indication: Ill-defined disorder
     Dosage: 0.9 PERCENT, QD
     Route: 042
     Dates: start: 2006
  388. SODIUM CHLORIDE [Suspect]
     Active Substance: SODIUM CHLORIDE
     Dosage: UNK
     Route: 042
  389. SODIUM CHLORIDE [Suspect]
     Active Substance: SODIUM CHLORIDE
     Dosage: 1 PERCENT, QD
     Route: 042
     Dates: start: 2006
  390. SODIUM BICARBONATE [Suspect]
     Active Substance: SODIUM BICARBONATE
     Indication: Pneumonia
     Dosage: 100 MILLIGRAM, BIWEEKLY
     Route: 042
  391. SODIUM BICARBONATE [Suspect]
     Active Substance: SODIUM BICARBONATE
     Indication: Ill-defined disorder
     Dosage: 10 MILLILITER, EVERY HOUR
     Route: 042
  392. SODIUM BICARBONATE [Suspect]
     Active Substance: SODIUM BICARBONATE
     Dosage: 100 MILLILITER, EVERY HOUR
     Route: 042
  393. SODIUM BICARBONATE [Suspect]
     Active Substance: SODIUM BICARBONATE
     Dosage: 200 MILLIGRAM, EVERY WEEK
     Route: 042
     Dates: start: 2006
  394. SODIUM BICARBONATE [Suspect]
     Active Substance: SODIUM BICARBONATE
     Dosage: 100 MILLIGRAM, EVERY HOUR
     Route: 042
     Dates: start: 2006
  395. SODIUM BICARBONATE [Suspect]
     Active Substance: SODIUM BICARBONATE
     Dosage: 100 MILLIGRAM(100 MG, QOW )
     Route: 065
  396. SODIUM BICARBONATE [Suspect]
     Active Substance: SODIUM BICARBONATE
     Dosage: 100 MILLIGRAM, EVERY HOUR
     Route: 042
     Dates: start: 2006
  397. SODIUM BICARBONATE [Suspect]
     Active Substance: SODIUM BICARBONATE
     Dosage: 100 MILLIGRAM, BIWEEKLY
     Route: 042
  398. SODIUM BICARBONATE [Suspect]
     Active Substance: SODIUM BICARBONATE
     Dosage: UNK
     Route: 065
  399. SODIUM BICARBONATE [Suspect]
     Active Substance: SODIUM BICARBONATE
     Dosage: 100 MILLILITER, EVERY HOUR
     Route: 042
     Dates: start: 2006
  400. THIAMINE HYDROCHLORIDE [Suspect]
     Active Substance: THIAMINE HYDROCHLORIDE
     Indication: Pneumonia
     Dosage: 100 MILLIGRAM, BID
     Route: 048
  401. THIAMINE HYDROCHLORIDE [Suspect]
     Active Substance: THIAMINE HYDROCHLORIDE
     Indication: Ill-defined disorder
     Dosage: 100 MILLIGRAM, QD
     Route: 042
  402. THIAMINE HYDROCHLORIDE [Suspect]
     Active Substance: THIAMINE HYDROCHLORIDE
     Dosage: 100 MILLIGRAM, QD
     Route: 048
     Dates: start: 2006
  403. THIAMINE HYDROCHLORIDE [Suspect]
     Active Substance: THIAMINE HYDROCHLORIDE
     Dosage: 100 MILLIGRAM, TID
     Route: 048
  404. THIAMINE HYDROCHLORIDE [Suspect]
     Active Substance: THIAMINE HYDROCHLORIDE
     Dosage: UNK
     Route: 065
  405. THIAMINE HYDROCHLORIDE [Suspect]
     Active Substance: THIAMINE HYDROCHLORIDE
     Dosage: UNK
     Route: 065
  406. THIAMINE HYDROCHLORIDE [Suspect]
     Active Substance: THIAMINE HYDROCHLORIDE
     Dosage: 100 MILLIGRAM, QD
     Route: 048
     Dates: start: 2006
  407. THIAMINE HYDROCHLORIDE [Suspect]
     Active Substance: THIAMINE HYDROCHLORIDE
     Dosage: 100 MILLIGRAM, QD
     Route: 048
     Dates: start: 2006
  408. THIAMINE HYDROCHLORIDE [Suspect]
     Active Substance: THIAMINE HYDROCHLORIDE
     Dosage: 100 MILLIGRAM, QD
     Route: 048
  409. THIAMINE HYDROCHLORIDE [Suspect]
     Active Substance: THIAMINE HYDROCHLORIDE
     Dosage: 100 MILLIGRAM, QD
     Route: 048
     Dates: start: 2006
  410. THIAMINE HYDROCHLORIDE [Suspect]
     Active Substance: THIAMINE HYDROCHLORIDE
     Dosage: 100 MILLIGRAM, QD
     Route: 048
     Dates: start: 2006
  411. VITAMIN K [Suspect]
     Active Substance: PHYTONADIONE
     Indication: Pneumonia
     Dosage: UNK
     Route: 065
  412. VITAMIN K [Suspect]
     Active Substance: PHYTONADIONE
     Indication: Ill-defined disorder
     Dosage: UNK
     Route: 042
     Dates: start: 2006
  413. VITAMIN K [Suspect]
     Active Substance: PHYTONADIONE
     Dosage: UNK
     Route: 065
     Dates: start: 2006
  414. LANSOPRAZOLE [Suspect]
     Active Substance: LANSOPRAZOLE
     Indication: Ill-defined disorder
     Dosage: 3 MILLIGRAM, UNK
     Route: 065
  415. LANSOPRAZOLE [Suspect]
     Active Substance: LANSOPRAZOLE
     Indication: Pneumonia
     Dosage: 30 GRAM, UNK
     Route: 065
  416. LANSOPRAZOLE [Suspect]
     Active Substance: LANSOPRAZOLE
     Dosage: 3 GRAM, QD
     Route: 065
  417. LANSOPRAZOLE [Suspect]
     Active Substance: LANSOPRAZOLE
     Dosage: 3 GRAM, QD
     Route: 065
  418. LANSOPRAZOLE [Suspect]
     Active Substance: LANSOPRAZOLE
     Dosage: 3 GRAM, EVERY HOUR
     Route: 065
  419. LANSOPRAZOLE [Suspect]
     Active Substance: LANSOPRAZOLE
     Dosage: 3 GRAM, EVERY HOUR
     Route: 042
  420. LANSOPRAZOLE [Suspect]
     Active Substance: LANSOPRAZOLE
     Dosage: 30 MILLIGRAM, QD
     Route: 065
     Dates: start: 2006
  421. LANSOPRAZOLE [Suspect]
     Active Substance: LANSOPRAZOLE
     Dosage: 30 MILLIGRAM, QD
     Route: 065
     Dates: start: 2006
  422. LANSOPRAZOLE [Suspect]
     Active Substance: LANSOPRAZOLE
     Dosage: 10 MILLILITER, UNK
     Route: 065
     Dates: start: 2006
  423. CLAVULANATE POTASSIUM [Suspect]
     Active Substance: CLAVULANATE POTASSIUM
     Indication: Product used for unknown indication
     Dosage: 250 MILLIGRAM
     Route: 048
  424. CLAVULANATE POTASSIUM [Suspect]
     Active Substance: CLAVULANATE POTASSIUM
     Dosage: 375 MILLIGRAM, TID (CUMULATIVE FREQUENCY: 286828.12 MG)
     Route: 065
     Dates: start: 20060913
  425. CLAVULANATE POTASSIUM [Suspect]
     Active Substance: CLAVULANATE POTASSIUM
     Dosage: 1125 MILLIGRAM, QD (CUMULATIVE FREQUENCY: 286828.12 MG)
     Route: 065
     Dates: start: 20060913
  426. CLAVULANATE POTASSIUM [Suspect]
     Active Substance: CLAVULANATE POTASSIUM
     Dosage: 2625 MILLIGRAM, QD (CUMULATIVE FREQUENCY: 669265.6 MG)
     Route: 065
     Dates: start: 20060913
  427. CLAVULANATE POTASSIUM [Suspect]
     Active Substance: CLAVULANATE POTASSIUM
     Dosage: 875 MILLIGRAM, QD (CUMULATIVE FREQUENCY:223088.55 MG)
     Route: 065
     Dates: start: 20060913
  428. CLAVULANATE POTASSIUM [Suspect]
     Active Substance: CLAVULANATE POTASSIUM
     Dosage: 1125 MILLIGRAM, QD (CUMULATIVE FREQUENCY: 286828.12 MG)
     Route: 065
     Dates: start: 20060913
  429. AMOXICILLIN\CLAVULANATE POTASSIUM [Concomitant]
     Active Substance: AMOXICILLIN\CLAVULANATE POTASSIUM
     Indication: Ill-defined disorder
     Dosage: 1125 MILLIGRAM, QD (CUMULATIVE FREQUENCY: 286828.12 MG)
     Route: 065
     Dates: start: 20060913
  430. AMOXICILLIN\CLAVULANATE POTASSIUM [Concomitant]
     Active Substance: AMOXICILLIN\CLAVULANATE POTASSIUM
     Dosage: 375 MILLIGRAM, TID (CUMULATIVE FREQUENCY: 286828.1 MG)
     Route: 065
     Dates: start: 20060913
  431. AMOXICILLIN\CLAVULANATE POTASSIUM [Concomitant]
     Active Substance: AMOXICILLIN\CLAVULANATE POTASSIUM
     Dosage: UNK, (CUMULATIVE FREQUENCY: 286828.1 MG)
     Route: 065
     Dates: start: 20060913
  432. AMOXICILLIN\CLAVULANATE POTASSIUM [Concomitant]
     Active Substance: AMOXICILLIN\CLAVULANATE POTASSIUM
     Dosage: 250 MILLIGRAM, (CUMULATIVE FREQUENCY:286828.1 MG)
     Route: 048
  433. AMOXICILLIN\CLAVULANATE POTASSIUM [Concomitant]
     Active Substance: AMOXICILLIN\CLAVULANATE POTASSIUM
     Dosage: 2625 MILLIGRAM PER DAY
     Route: 065
     Dates: start: 20060913
  434. AMOXICILLIN\CLAVULANATE POTASSIUM [Concomitant]
     Active Substance: AMOXICILLIN\CLAVULANATE POTASSIUM
     Dosage: 250 MILLIGRAM
     Route: 048
  435. ATROVENT [Concomitant]
     Active Substance: IPRATROPIUM BROMIDE
     Indication: Ill-defined disorder
     Dosage: UNK
     Route: 065
  436. ATROVENT [Concomitant]
     Active Substance: IPRATROPIUM BROMIDE
     Dosage: 1 DOSAGE FORM, UNK
     Route: 048
  437. ATROVENT [Concomitant]
     Active Substance: IPRATROPIUM BROMIDE
     Dosage: 1 DOSAGE FORM
     Route: 048
  438. ATROVENT [Concomitant]
     Active Substance: IPRATROPIUM BROMIDE
     Dosage: UNK, PRN
     Route: 048
  439. ATROVENT [Concomitant]
     Active Substance: IPRATROPIUM BROMIDE
     Dosage: 100 MILLIGRAM, TWICE A WEEK
     Route: 065
  440. ATROVENT [Concomitant]
     Active Substance: IPRATROPIUM BROMIDE
     Dosage: UNK
     Route: 065
  441. ATROVENT [Concomitant]
     Active Substance: IPRATROPIUM BROMIDE
     Dosage: 1 DOSAGE FORM
     Route: 048
  442. ATROVENT [Concomitant]
     Active Substance: IPRATROPIUM BROMIDE
     Dosage: 1 DOSAGE FORM, PRN
     Route: 048
  443. ATROVENT [Concomitant]
     Active Substance: IPRATROPIUM BROMIDE
     Dosage: UNK, PRN
     Route: 065
  444. ATROVENT [Concomitant]
     Active Substance: IPRATROPIUM BROMIDE
     Dosage: UNK
     Route: 065
  445. METOCLOPRAMIDE HYDROCHLORIDE [Concomitant]
     Active Substance: METOCLOPRAMIDE HYDROCHLORIDE
     Indication: Ill-defined disorder
     Dosage: 10 MILLIGRAM
     Route: 042
  446. METOCLOPRAMIDE HYDROCHLORIDE [Concomitant]
     Active Substance: METOCLOPRAMIDE HYDROCHLORIDE
     Dosage: UNK
     Route: 065
  447. METOCLOPRAMIDE HYDROCHLORIDE [Concomitant]
     Active Substance: METOCLOPRAMIDE HYDROCHLORIDE
     Dosage: 10 MILLIGRAM, QD
     Route: 042
  448. METOCLOPRAMIDE HYDROCHLORIDE [Concomitant]
     Active Substance: METOCLOPRAMIDE HYDROCHLORIDE
     Dosage: 10 MILLIGRAM, QD
     Route: 042
  449. PANTOPRAZOLE [Concomitant]
     Active Substance: PANTOPRAZOLE
     Indication: Ill-defined disorder
     Dosage: 40 MILLIGRAM, QD
     Route: 042
  450. PANTOPRAZOLE [Concomitant]
     Active Substance: PANTOPRAZOLE
     Dosage: 40 MILLIGRAM
     Route: 042
  451. PIPERACILLIN SODIUM\TAZOBACTAM SODIUM [Concomitant]
     Active Substance: PIPERACILLIN SODIUM\TAZOBACTAM SODIUM
     Indication: Product used for unknown indication
     Dosage: 18 GRAM, QD
     Route: 042
     Dates: start: 20061004
  452. PIPERACILLIN SODIUM\TAZOBACTAM SODIUM [Concomitant]
     Active Substance: PIPERACILLIN SODIUM\TAZOBACTAM SODIUM
     Dosage: 4.5 GRAM (INCREASED TO 4 TIMES DAILY)
     Route: 042
     Dates: start: 20061004
  453. PIPERACILLIN SODIUM\TAZOBACTAM SODIUM [Concomitant]
     Active Substance: PIPERACILLIN SODIUM\TAZOBACTAM SODIUM
     Dosage: 18 GRAM DAILY, (CUMULATIVE FREQUENCY: 3725.438 G)
     Route: 042
     Dates: start: 20061004, end: 20061009
  454. PIPERACILLIN SODIUM\TAZOBACTAM SODIUM [Concomitant]
     Active Substance: PIPERACILLIN SODIUM\TAZOBACTAM SODIUM
     Dosage: 13.5 GRAM, QD (CUMULATIVE FREQUENCY:3725.438 G )
     Route: 065
  455. PIPERACILLIN SODIUM\TAZOBACTAM SODIUM [Concomitant]
     Active Substance: PIPERACILLIN SODIUM\TAZOBACTAM SODIUM
     Dosage: 72 GRAM, QD
     Route: 042
     Dates: start: 20061004, end: 20061009
  456. PIPERACILLIN SODIUM\TAZOBACTAM SODIUM [Concomitant]
     Active Substance: PIPERACILLIN SODIUM\TAZOBACTAM SODIUM
     Dosage: 4.5 GRAM, TID
     Route: 065
  457. PIPERACILLIN SODIUM\TAZOBACTAM SODIUM [Concomitant]
     Active Substance: PIPERACILLIN SODIUM\TAZOBACTAM SODIUM
     Dosage: 72 GRAM, QD
     Route: 042
     Dates: start: 20061004, end: 20061009
  458. PIPERACILLIN SODIUM\TAZOBACTAM SODIUM [Concomitant]
     Active Substance: PIPERACILLIN SODIUM\TAZOBACTAM SODIUM
     Dosage: 4.5 GRAM, QD
     Route: 042
     Dates: start: 20061009
  459. PIPERACILLIN SODIUM\TAZOBACTAM SODIUM [Concomitant]
     Active Substance: PIPERACILLIN SODIUM\TAZOBACTAM SODIUM
     Dosage: 1 DOSAGE FORM, EVERY 6 HRS
     Route: 065
     Dates: start: 20060410, end: 20060910
  460. PIPERACILLIN SODIUM\TAZOBACTAM SODIUM [Concomitant]
     Active Substance: PIPERACILLIN SODIUM\TAZOBACTAM SODIUM
     Dosage: 54 GRAM, TID
     Route: 042
     Dates: start: 20061004, end: 20061009
  461. PIPERACILLIN SODIUM\TAZOBACTAM SODIUM [Concomitant]
     Active Substance: PIPERACILLIN SODIUM\TAZOBACTAM SODIUM
     Dosage: 18 GRAM, QD, (CUMULATIVE FREQUENCY: 3725.438 G)
     Route: 065
     Dates: start: 20061004, end: 20061009
  462. PIPERACILLIN SODIUM\TAZOBACTAM SODIUM [Concomitant]
     Active Substance: PIPERACILLIN SODIUM\TAZOBACTAM SODIUM
     Dosage: 4.5 GRAM, QID
     Route: 065
     Dates: start: 2006
  463. PIPERACILLIN SODIUM\TAZOBACTAM SODIUM [Concomitant]
     Active Substance: PIPERACILLIN SODIUM\TAZOBACTAM SODIUM
     Dosage: 5 GRAM, EVERY 6 HRS, 5 G, 1 DOSE 6 HOURS
     Route: 065
     Dates: start: 20060410, end: 20060910
  464. PIPERACILLIN SODIUM\TAZOBACTAM SODIUM [Concomitant]
     Active Substance: PIPERACILLIN SODIUM\TAZOBACTAM SODIUM
     Dosage: 4.5 GRAM, INCREASED TO 4 TIMES DAILY
     Route: 042
     Dates: start: 20061004
  465. PIPERACILLIN SODIUM\TAZOBACTAM SODIUM [Concomitant]
     Active Substance: PIPERACILLIN SODIUM\TAZOBACTAM SODIUM
     Dosage: 13.5 GRAM, QD, (CUMULATIVE DOSE: 3725.438 G )
     Route: 065
     Dates: start: 2006
  466. PIPERACILLIN SODIUM\TAZOBACTAM SODIUM [Concomitant]
     Active Substance: PIPERACILLIN SODIUM\TAZOBACTAM SODIUM
     Dosage: UNK
     Route: 065
     Dates: start: 2006
  467. PIPERACILLIN SODIUM\TAZOBACTAM SODIUM [Concomitant]
     Active Substance: PIPERACILLIN SODIUM\TAZOBACTAM SODIUM
     Dosage: 18 GRAM, QD,
     Route: 042
     Dates: start: 20061004, end: 20061009
  468. VANCOMYCIN [Concomitant]
     Active Substance: VANCOMYCIN
     Indication: Ill-defined disorder
     Dosage: 400 MILLIGRAM, QD
     Route: 042
  469. VANCOMYCIN [Concomitant]
     Active Substance: VANCOMYCIN
     Dosage: UNK
     Route: 065
  470. VANCOMYCIN [Concomitant]
     Active Substance: VANCOMYCIN
     Dosage: 1 GRAM, QD
     Route: 042
  471. VANCOMYCIN [Concomitant]
     Active Substance: VANCOMYCIN
     Dosage: 1 GRAM ADILY
     Route: 042
  472. ZOPICLONE [Concomitant]
     Active Substance: ZOPICLONE
     Indication: Product used for unknown indication
     Dosage: UNK
     Route: 048
  473. ZOPICLONE [Concomitant]
     Active Substance: ZOPICLONE
     Dosage: UNK
     Route: 048
  474. ZOPICLONE [Concomitant]
     Active Substance: ZOPICLONE
     Dosage: UNK
     Route: 048

REACTIONS (4)
  - Toxic epidermal necrolysis [Unknown]
  - Condition aggravated [Unknown]
  - Drug hypersensitivity [Unknown]
  - Off label use [Unknown]

NARRATIVE: CASE EVENT DATE: 20060101
